FAERS Safety Report 12547009 (Version 2)
Quarter: 2016Q4

REPORT INFORMATION
  Report Type: Spontaneous
  Country: US (occurrence: US)
  Receive Date: 20160711
  Receipt Date: 20161013
  Transmission Date: 20170207
  Serious: No
  Sender: FDA-Public Use
  Company Number: ALCN2016US004598

PATIENT
  Age: 75 Year
  Sex: Female

DRUGS (2)
  1. TIMOLOL GFS [Suspect]
     Active Substance: TIMOLOL MALEATE
     Dosage: 1 GTT, QHS
     Route: 047
     Dates: start: 201605
  2. TIMOLOL GFS [Suspect]
     Active Substance: TIMOLOL MALEATE
     Indication: INTRAOCULAR PRESSURE INCREASED
     Dosage: 1 GTT, QHS
     Route: 047

REACTIONS (2)
  - Product quality issue [Unknown]
  - Intraocular pressure increased [Not Recovered/Not Resolved]

NARRATIVE: CASE EVENT DATE: 201605
